FAERS Safety Report 24184119 (Version 1)
Quarter: 2024Q3

REPORT INFORMATION
  Report Type: Spontaneous
  Country: RU (occurrence: RU)
  Receive Date: 20240807
  Receipt Date: 20240807
  Transmission Date: 20241017
  Serious: Yes (Death, Hospitalization, Other)
  Sender: AMGEN
  Company Number: RU-AMGEN-RUSSP2024151183

PATIENT
  Age: 73 Year
  Sex: Male

DRUGS (5)
  1. XGEVA [Suspect]
     Active Substance: DENOSUMAB
     Indication: Renal cancer stage IV
     Dosage: 120 MILLIGRAM
     Route: 065
     Dates: start: 20210517
  2. XGEVA [Suspect]
     Active Substance: DENOSUMAB
     Dosage: 120 MILLIGRAM
     Route: 065
     Dates: start: 20210818
  3. ZOLEDRONIC ACID [Concomitant]
     Active Substance: ZOLEDRONIC ACID
     Dosage: 4 MILLIGRAM
     Route: 042
  4. BEVACIZUMAB [Concomitant]
     Active Substance: BEVACIZUMAB
     Dosage: 10 MILLIGRAM/KILOGRAM, Q2WK
     Route: 042
  5. SORAFENIB [Concomitant]
     Active Substance: SORAFENIB
     Indication: Renal cancer stage IV
     Dosage: 800 MILLIGRAM, QD
     Route: 065
     Dates: start: 2021

REACTIONS (9)
  - Multiple organ dysfunction syndrome [Fatal]
  - Shock [Fatal]
  - Renal cancer metastatic [Fatal]
  - Pulmonary oedema [Unknown]
  - Thrombosis mesenteric vessel [Unknown]
  - Pulmonary embolism [Unknown]
  - Gastric ulcer [Unknown]
  - Cardiac failure congestive [Unknown]
  - Pneumonia [Unknown]

NARRATIVE: CASE EVENT DATE: 20220101
